FAERS Safety Report 7179568-0 (Version None)
Quarter: 2010Q4

REPORT INFORMATION
  Report Type: 
  Country: None (occurrence: None)
  Receive Date: 20101221
  Receipt Date: 20101207
  Transmission Date: 20110411
  Serious: Yes (Hospitalization)
  Sender: FDA-Public Use
  Company Number: PHHY2010US60573

PATIENT
  Sex: Male
  Weight: 74 kg

DRUGS (10)
  1. ZOMETA [Suspect]
     Indication: METASTASES TO BONE
     Dosage: 4 MG, 4 WEEKS
     Route: 042
     Dates: start: 20100419, end: 20100517
  2. PREDNISONE [Concomitant]
     Indication: PROSTATE CANCER
     Dosage: 5 MG, BID
     Route: 048
     Dates: start: 20100208, end: 20100601
  3. COMPAZINE [Concomitant]
  4. TAXOTERE [Concomitant]
     Indication: PROSTATE CANCER
     Dosage: UNK
     Route: 042
     Dates: start: 20100208, end: 20100601
  5. KYTRIL [Concomitant]
  6. NITRGLYCERIN TRANSDERMAL SYSTEM [Concomitant]
  7. MULTI-VITAMINS [Concomitant]
  8. ASCORBIC ACID [Concomitant]
  9. LUPRON [Concomitant]
     Dosage: UNK
     Route: 030
  10. COMBIVENT [Concomitant]

REACTIONS (7)
  - ATRIAL FIBRILLATION [None]
  - CARDIAC FAILURE CONGESTIVE [None]
  - DYSPNOEA [None]
  - HEART RATE IRREGULAR [None]
  - OEDEMA PERIPHERAL [None]
  - PRODUCTIVE COUGH [None]
  - RESPIRATION ABNORMAL [None]
